FAERS Safety Report 11414103 (Version 1)
Quarter: 2015Q3

REPORT INFORMATION
  Report Type: Other
  Country: GB (occurrence: GB)
  Receive Date: 20150824
  Receipt Date: 20150824
  Transmission Date: 20151125
  Serious: Yes (Other)
  Sender: FDA-Public Use
  Company Number: GB-MYLANLABS-2015M1027432

PATIENT

DRUGS (19)
  1. ASPIRIN                            /00002701/ [Concomitant]
     Active Substance: ASPIRIN
     Dosage: 1 DF, QD
     Dates: start: 20141028
  2. MACROGOL [Concomitant]
     Active Substance: POLYETHYLENE GLYCOLS
     Dosage: ONE SACHET TO BE TAKEN AS DIRECTED
     Dates: start: 20141028
  3. PIZOTIFEN [Concomitant]
     Active Substance: PIZOTYLINE
     Dosage: TAKE ONE DAILY
     Dates: start: 20141028
  4. BACLOFEN. [Concomitant]
     Active Substance: BACLOFEN
     Dosage: 1 DF, TID
     Dates: start: 20141028
  5. RANITIDINE [Concomitant]
     Active Substance: RANITIDINE\RANITIDINE HYDROCHLORIDE
     Dosage: AT NIGHT
     Dates: start: 20141028
  6. QUININE [Suspect]
     Active Substance: QUININE
     Dosage: UNK
  7. PREDNISOLONE. [Concomitant]
     Active Substance: PREDNISOLONE
     Dates: start: 20150629, end: 20150706
  8. VENLAFAXINE [Concomitant]
     Active Substance: VENLAFAXINE HYDROCHLORIDE
     Dosage: ONE TO BE TAKEN TWICE DAILY (HAVE BLOOD PRESSUR...
     Dates: start: 20150218
  9. AMITRIPTYLINE HYDROCHLORIDE. [Concomitant]
     Active Substance: AMITRIPTYLINE HYDROCHLORIDE
     Dosage: AT NIGHT
     Dates: start: 20141028
  10. BETAMETHASONE VALERATE. [Concomitant]
     Active Substance: BETAMETHASONE VALERATE
     Dosage: 1 DF, BID
     Dates: start: 20150601, end: 20150615
  11. DERMOVATE [Concomitant]
     Active Substance: CLOBETASOL
     Dosage: 1 DF, QD
     Dates: start: 20141028
  12. DOUBLEBASE [Concomitant]
     Active Substance: ISOPROPYL MYRISTATE\PARAFFIN
     Indication: DRY SKIN
     Dates: start: 20150601, end: 20150701
  13. MORPHINE SULFATE. [Concomitant]
     Active Substance: MORPHINE SULFATE
     Dosage: TAKE ONE AS NEEDED UP TO 2-3 TIMES DAILY
     Dates: start: 20141028
  14. MST CONTINUS [Concomitant]
     Active Substance: MORPHINE SULFATE
     Dates: start: 20141028
  15. PREGABALIN. [Concomitant]
     Active Substance: PREGABALIN
     Dates: start: 20150309
  16. SIMVASTATIN. [Concomitant]
     Active Substance: SIMVASTATIN
     Dosage: AT NIGHT
     Dates: start: 20141028
  17. PARACETAMOL [Concomitant]
     Active Substance: ACETAMINOPHEN
     Dosage: ONE OR TWO TO BE TAKEN FOUR TIMES A DAY
     Dates: start: 20141028
  18. OMEPRAZOLE. [Concomitant]
     Active Substance: OMEPRAZOLE
     Dosage: 1 DF, BID
     Dates: start: 20141028
  19. VISCOTEARS [Concomitant]
     Active Substance: CARBOMER
     Dates: start: 20141028

REACTIONS (2)
  - Oral mucosal blistering [Recovering/Resolving]
  - Rash [Recovering/Resolving]

NARRATIVE: CASE EVENT DATE: 20150730
